FAERS Safety Report 18930686 (Version 1)
Quarter: 2021Q1

REPORT INFORMATION
  Report Type: Spontaneous
  Country: DE (occurrence: DE)
  Receive Date: 20210223
  Receipt Date: 20210223
  Transmission Date: 20210420
  Serious: Yes (Congenital Anomaly, Other)
  Sender: FDA-Public Use
  Company Number: DE-PFIZER INC-2021164837

PATIENT
  Age: 1 Day
  Sex: Male
  Weight: 2.84 kg

DRUGS (5)
  1. BOOSTRIX [Concomitant]
     Active Substance: TETANUS TOXOID, REDUCED DIPHTHERIA TOXOID AND ACELLULAR PERTUSSIS VACCINE, ADSORBED ANTIGENS
     Indication: IMMUNISATION
     Dosage: 29.3. ? 29.3. GESTATIONAL WEEK
     Route: 064
     Dates: start: 20200814, end: 20200814
  2. INFLUSPLIT TETRA [Concomitant]
     Active Substance: INFLUENZA VIRUS VACCINE
     Indication: IMMUNISATION
     Dosage: 6.3. ? 33.6. GESTATIONAL WEEK
     Route: 064
     Dates: start: 202003
  3. VENLAFAXINE HCL [Suspect]
     Active Substance: VENLAFAXINE HYDROCHLORIDE
     Indication: ANXIETY DISORDER
     Dosage: 225 [MG/D (150?75?0 MG/D) ] 0. ? 38.5. GESTATIONAL WEEK
     Route: 064
     Dates: start: 20200121, end: 20201018
  4. METOPROLOL. [Suspect]
     Active Substance: METOPROLOL
     Indication: HYPERTENSION
     Dosage: 23.75 [MG/D ] ? 0. ? 38.5. GESTATIONAL WEEK
     Route: 064
     Dates: start: 20200121, end: 20201018
  5. INFLUSPLIT TETRA [Concomitant]
     Active Substance: INFLUENZA VIRUS VACCINE
     Dosage: 6.3. ? 33.6. GESTATIONAL WEEK
     Route: 064
     Dates: start: 20200914

REACTIONS (4)
  - Patent ductus arteriosus [Recovered/Resolved]
  - Transposition of the great vessels [Unknown]
  - Atrial septal defect [Unknown]
  - Foetal exposure during pregnancy [Unknown]

NARRATIVE: CASE EVENT DATE: 20201018
